FAERS Safety Report 8362628-6 (Version None)
Quarter: 2012Q2

REPORT INFORMATION
  Report Type: 
  Country: None (occurrence: None)
  Receive Date: 20120516
  Receipt Date: 20120509
  Transmission Date: 20120825
  Serious: No
  Sender: FDA-Public Use
  Company Number: US-PFIZER INC-2012113700

PATIENT
  Sex: Female
  Weight: 66.7 kg

DRUGS (2)
  1. CELEBREX [Suspect]
     Indication: ARTHRITIS
     Dosage: 200 MG, 1X/DAY
     Route: 048
     Dates: start: 20120419
  2. ASPIRIN [Concomitant]
     Dosage: 325 MG, UNK

REACTIONS (1)
  - OEDEMA [None]
